FAERS Safety Report 7195753-6 (Version None)
Quarter: 2010Q4

REPORT INFORMATION
  Report Type: 
  Country: None (occurrence: None)
  Receive Date: 20101223
  Receipt Date: 20101008
  Transmission Date: 20110411
  Serious: No
  Sender: FDA-Public Use
  Company Number: US-AMGEN-KDL444189

PATIENT

DRUGS (2)
  1. ENBREL [Suspect]
     Indication: RHEUMATOID ARTHRITIS
     Dosage: 50 MG, QWK
     Route: 058
     Dates: start: 20091021
  2. METHOTREXATE [Concomitant]

REACTIONS (4)
  - DYSGEUSIA [None]
  - DYSPNOEA [None]
  - FATIGUE [None]
  - PRURITUS GENERALISED [None]
